FAERS Safety Report 15356728 (Version 1)
Quarter: 2018Q3

REPORT INFORMATION
  Report Type: Spontaneous
  Country: NL (occurrence: NL)
  Receive Date: 20180906
  Receipt Date: 20180906
  Transmission Date: 20181010
  Serious: Yes (Congenital Anomaly, Other)
  Sender: FDA-Public Use
  Company Number: NL-APOTEX-2018AP020230

PATIENT

DRUGS (1)
  1. PAROXETINE TABLET [Suspect]
     Active Substance: PAROXETINE
     Dosage: UNK
     Route: 064

REACTIONS (3)
  - Coarctation of the aorta [Unknown]
  - Foetal exposure during pregnancy [Unknown]
  - Congenital cardiovascular anomaly [Unknown]
